FAERS Safety Report 10230976 (Version 1)
Quarter: 2014Q2

REPORT INFORMATION
  Report Type: Spontaneous
  Country: US (occurrence: None)
  Receive Date: 20140610
  Receipt Date: 20140610
  Transmission Date: 20141212
  Serious: Yes (Disabling)
  Sender: FDA-Public Use
  Company Number: None

PATIENT
  Age: 39 Year
  Sex: Female
  Weight: 61.69 kg

DRUGS (2)
  1. ZYPREXA [Suspect]
     Indication: DEPRESSION
     Dosage: TAKEN BY MOUTH
  2. ZYPREXA [Suspect]
     Indication: PARANOIA
     Dosage: TAKEN BY MOUTH

REACTIONS (12)
  - Weight increased [None]
  - Crying [None]
  - Anxiety [None]
  - Paranoia [None]
  - Panic attack [None]
  - Nausea [None]
  - Decreased appetite [None]
  - Insomnia [None]
  - Weight decreased [None]
  - No therapeutic response [None]
  - Early satiety [None]
  - Thirst decreased [None]
